FAERS Safety Report 7717094-8 (Version None)
Quarter: 2011Q3

REPORT INFORMATION
  Report Type: 
  Country: None (occurrence: None)
  Receive Date: 20110830
  Receipt Date: 20110818
  Transmission Date: 20111222
  Serious: Yes (Hospitalization)
  Sender: FDA-Public Use
  Company Number: BR-BIOGENIDEC-2011BI031889

PATIENT
  Age: 67 Year
  Sex: Female
  Weight: 62 kg

DRUGS (4)
  1. AVONEX [Suspect]
     Indication: MULTIPLE SCLEROSIS
     Route: 030
     Dates: start: 20070101
  2. DEXA-CITONEURIN [Concomitant]
     Indication: PAIN
     Route: 030
  3. MEDICATIONS (NOS) [Concomitant]
     Indication: PAIN
  4. MEDICATIONS (NOS) [Concomitant]
     Indication: OSTEOARTHRITIS

REACTIONS (5)
  - SUBCUTANEOUS ABSCESS [None]
  - CHOKING [None]
  - EATING DISORDER [None]
  - WEIGHT DECREASED [None]
  - THROAT TIGHTNESS [None]
